FAERS Safety Report 12228402 (Version 1)
Quarter: 2016Q1

REPORT INFORMATION
  Report Type: Spontaneous
  Country: US (occurrence: None)
  Receive Date: 20160330
  Receipt Date: 20160330
  Transmission Date: 20160526
  Serious: Yes (Disabling, Other)
  Sender: FDA-Public Use
  Company Number: None

PATIENT
  Age: 62 Year
  Sex: Female
  Weight: 61.69 kg

DRUGS (5)
  1. CLONAZEPAM. [Concomitant]
     Active Substance: CLONAZEPAM
  2. PICATO [Suspect]
     Active Substance: INGENOL MEBUTATE
     Indication: ACTINIC KERATOSIS
     Dosage: 0.015% [150MG] 3 TINY BOTTLE APPLICATIONS 3 DROPS/EACH DAY FOR 3 DAYS SKIN
     Dates: start: 20151227, end: 20151230
  3. XANAX [Concomitant]
     Active Substance: ALPRAZOLAM
  4. ACTENOL [Concomitant]
  5. PROGESTERONE/ESTRIADOL [Concomitant]

REACTIONS (11)
  - Application site erosion [None]
  - Swelling face [None]
  - Application site pain [None]
  - Application site erythema [None]
  - Deformity [None]
  - Application site warmth [None]
  - Application site discharge [None]
  - Activities of daily living impaired [None]
  - Application site scab [None]
  - Application site discolouration [None]
  - Application site vesicles [None]

NARRATIVE: CASE EVENT DATE: 20141227
